FAERS Safety Report 5123626-9 (Version None)
Quarter: 2006Q4

REPORT INFORMATION
  Report Type: 
  Country: None (occurrence: None)
  Receive Date: 20060910
  Receipt Date: 20050711
  Transmission Date: 20070319
  Serious: Yes (Hospitalization, Other)
  Sender: FDA-Public Use
  Company Number: USA0507102462

PATIENT
  Age: 9 Year
  Sex: Male

DRUGS (4)
  1. HUMALOG [Suspect]
     Indication: DIABETES MELLITUS
     Dosage: 3 ML, AS NEEDED
     Dates: start: 20000101
  2. HUMULIN R [Suspect]
     Indication: DIABETES MELLITUS
     Dosage: 0.25 ML, AS NEEDED
     Dates: start: 19940101, end: 20000101
  3. HUMULIN L [Suspect]
     Indication: DIABETES MELLITUS
     Dates: start: 20000101
  4. INSULIN(INSULIN, ANIMAL) VIAL [Suspect]
     Indication: DIABETES MELLITUS
     Dates: start: 19940101, end: 20000101

REACTIONS (10)
  - ABNORMAL BEHAVIOUR [None]
  - BLOOD GLUCOSE INCREASED [None]
  - COMA [None]
  - CONVULSION [None]
  - HYPOGLYCAEMIA [None]
  - MALAISE [None]
  - NERVOUS SYSTEM DISORDER [None]
  - SHOCK HYPOGLYCAEMIC [None]
  - SOMNOLENCE [None]
  - VISION BLURRED [None]
